FAERS Safety Report 6666126-7 (Version None)
Quarter: 2010Q2

REPORT INFORMATION
  Report Type: 
  Country: None (occurrence: None)
  Receive Date: 20100402
  Receipt Date: 20100326
  Transmission Date: 20101027
  Serious: Yes (Other)
  Sender: FDA-Public Use
  Company Number: GB-TEVA-184867ISR

PATIENT
  Sex: Female

DRUGS (5)
  1. FLUOROURACIL [Suspect]
     Indication: COLORECTAL CANCER
     Route: 040
     Dates: start: 20080925
  2. FLUOROURACIL [Suspect]
     Route: 041
     Dates: start: 20080925
  3. FOLINIC ACID [Suspect]
     Indication: COLORECTAL CANCER
     Route: 042
     Dates: start: 20080925
  4. SUNITINIB MALEATE (BLINDED THERAPY) [Suspect]
     Indication: COLORECTAL CANCER
     Route: 048
     Dates: start: 20080925
  5. IRINOTECAN HCL [Suspect]
     Indication: COLORECTAL CANCER
     Route: 042
     Dates: start: 20080925

REACTIONS (3)
  - AMNESIA [None]
  - INTRAOCULAR PRESSURE INCREASED [None]
  - ISCHAEMIA [None]
